FAERS Safety Report 20527590 (Version 1)
Quarter: 2022Q1

REPORT INFORMATION
  Report Type: Report from Study
  Country: US (occurrence: None)
  Receive Date: 20220228
  Receipt Date: 20220228
  Transmission Date: 20220423
  Serious: Yes (Death)
  Sender: FDA-Public Use
  Company Number: 2022A085673

PATIENT
  Age: 22326 Day
  Sex: Male

DRUGS (4)
  1. FASENRA [Suspect]
     Active Substance: BENRALIZUMAB
     Indication: Essential hypertension
     Route: 058
     Dates: start: 201909
  2. FASENRA [Suspect]
     Active Substance: BENRALIZUMAB
     Indication: Asthma
     Route: 058
     Dates: start: 201909
  3. FASENRA [Suspect]
     Active Substance: BENRALIZUMAB
     Indication: Acromegaly
     Route: 058
     Dates: start: 201909
  4. FASENRA [Suspect]
     Active Substance: BENRALIZUMAB
     Indication: Gigantism
     Route: 058
     Dates: start: 201909

REACTIONS (1)
  - Death [Fatal]

NARRATIVE: CASE EVENT DATE: 20220207
